FAERS Safety Report 11162935 (Version 3)
Quarter: 2017Q2

REPORT INFORMATION
  Report Type: Spontaneous
  Country: US (occurrence: US)
  Receive Date: 20150604
  Receipt Date: 20170606
  Transmission Date: 20170829
  Serious: No
  Sender: FDA-Public Use
  Company Number: US-SA-2015SA020619

PATIENT
  Age: 82 Year
  Sex: Male

DRUGS (4)
  1. AVAPRO [Concomitant]
     Active Substance: IRBESARTAN
  2. SOLOSTAR [Suspect]
     Active Substance: DEVICE
     Indication: TYPE 2 DIABETES MELLITUS
     Dates: start: 2012
  3. LANTUS SOLOSTAR [Suspect]
     Active Substance: INSULIN GLARGINE
     Indication: TYPE 2 DIABETES MELLITUS
     Dosage: DOSE:15 UNIT(S)
     Route: 065
     Dates: start: 2012
  4. METFORMIN [Concomitant]
     Active Substance: METFORMIN HYDROCHLORIDE

REACTIONS (3)
  - Wrong technique in device usage process [Unknown]
  - Injection site haemorrhage [Unknown]
  - Device issue [Unknown]

NARRATIVE: CASE EVENT DATE: 20150213
